FAERS Safety Report 5912349-1 (Version None)
Quarter: 2008Q4

REPORT INFORMATION
  Report Type: 
  Country: None (occurrence: None)
  Receive Date: 20081007
  Receipt Date: 20081007
  Transmission Date: 20090506
  Serious: Yes (Hospitalization)
  Sender: FDA-Public Use
  Company Number: None

PATIENT
  Sex: Female
  Weight: 75.2 kg

DRUGS (9)
  1. AVASTIN [Suspect]
     Indication: BREAST CANCER
     Dosage: 10MG/KG  Q3WEEKS  IV
     Route: 042
  2. AVASTIN [Suspect]
     Indication: METASTASES TO CENTRAL NERVOUS SYSTEM
     Dosage: 10MG/KG  Q3WEEKS  IV
     Route: 042
  3. ZEGERID [Concomitant]
  4. DECADRON [Concomitant]
  5. DIFLUCAN [Concomitant]
  6. DILANTIN [Concomitant]
  7. ATIVAN [Concomitant]
  8. DARVOCET [Concomitant]
  9. STOOL SOFTENER [Concomitant]

REACTIONS (4)
  - DIARRHOEA [None]
  - HEADACHE [None]
  - NAUSEA [None]
  - VOMITING [None]
